FAERS Safety Report 6709582-8 (Version None)
Quarter: 2010Q2

REPORT INFORMATION
  Report Type: 
  Country: None (occurrence: None)
  Receive Date: 20100504
  Receipt Date: 20100429
  Transmission Date: 20101027
  Serious: Yes (Life-Threatening, Hospitalization)
  Sender: FDA-Public Use
  Company Number: PL-ROCHE-695451

PATIENT
  Sex: Female

DRUGS (2)
  1. BLINDED TOCILIZUMAB [Suspect]
     Indication: RHEUMATOID ARTHRITIS
     Dosage: FORM: INFUSION,  DOSE: BLINDED,  BLIND PHASE.
     Route: 042
     Dates: start: 20060727, end: 20070626
  2. TOCILIZUMAB [Suspect]
     Indication: RHEUMATOID ARTHRITIS
     Dosage: LAST DOSE PRIOR TO SAE: 03 MARCH 2010, FORM: INFUSION
     Route: 042
     Dates: start: 20070726

REACTIONS (1)
  - RENAL FAILURE ACUTE [None]
